FAERS Safety Report 10228602 (Version 1)
Quarter: 2014Q2

REPORT INFORMATION
  Report Type: Spontaneous
  Country: FR (occurrence: None)
  Receive Date: 20140502
  Receipt Date: 20140502
  Transmission Date: 20141212
  Serious: Yes (Other)
  Sender: FDA-Public Use
  Company Number: EUS-2013-00814

PATIENT
  Age: 24 Year
  Sex: Female

DRUGS (1)
  1. ASPARAGINASE (UNSPECIFIED) (ASPARAGINASE) INJECTION [Suspect]
     Indication: PRECURSOR T-LYMPHOBLASTIC LYMPHOMA/LEUKAEMIA
     Dates: start: 201307

REACTIONS (2)
  - Vomiting [None]
  - Rash [None]
